FAERS Safety Report 24882375 (Version 1)
Quarter: 2025Q1

REPORT INFORMATION
  Report Type: Spontaneous
  Country: NL (occurrence: NL)
  Receive Date: 20250124
  Receipt Date: 20250124
  Transmission Date: 20250409
  Serious: Yes (Other)
  Sender: JUBILANT
  Company Number: None

PATIENT
  Age: 33 Year
  Sex: Female
  Weight: 60 kg

DRUGS (1)
  1. CITALOPRAM HYDROBROMIDE [Suspect]
     Active Substance: CITALOPRAM HYDROBROMIDE
     Indication: Depressed mood
     Dosage: 20 MG, ONCE PER DAY (1 PIECE ONCE PER DAY)
     Route: 048
     Dates: start: 20180501

REACTIONS (5)
  - Genital hypoaesthesia [Recovering/Resolving]
  - Urinary retention [Recovered/Resolved]
  - Anorgasmia [Recovering/Resolving]
  - Night sweats [Recovered/Resolved]
  - Hypertonic bladder [Recovered/Resolved]
